FAERS Safety Report 7519534-6 (Version None)
Quarter: 2011Q2

REPORT INFORMATION
  Report Type: 
  Country: None (occurrence: None)
  Receive Date: 20110602
  Receipt Date: 20110530
  Transmission Date: 20111010
  Serious: Yes (Hospitalization, Other)
  Sender: FDA-Public Use
  Company Number: DE-ABBOTT-11P-062-0720172-00

PATIENT
  Sex: Female

DRUGS (4)
  1. METHOTREXATE [Concomitant]
     Indication: RHEUMATOID ARTHRITIS
  2. ETORICOXIB [Concomitant]
     Indication: RHEUMATOID ARTHRITIS
  3. HUMIRA [Suspect]
     Indication: RHEUMATOID ARTHRITIS
     Route: 058
     Dates: start: 20110106, end: 20110412
  4. CORTISONE ACETATE [Concomitant]
     Indication: RHEUMATOID ARTHRITIS

REACTIONS (2)
  - FOOT DEFORMITY [None]
  - ARTHROPATHY [None]
